FAERS Safety Report 5244275-8 (Version None)
Quarter: 2007Q1

REPORT INFORMATION
  Report Type: 
  Country: None (occurrence: None)
  Receive Date: 20070222
  Receipt Date: 20070213
  Transmission Date: 20070707
  Serious: Yes (Other)
  Sender: FDA-Public Use
  Company Number: 2006AP06211

PATIENT
  Age: 27264 Day
  Sex: Female

DRUGS (11)
  1. IRESSA [Suspect]
     Indication: NON-SMALL CELL LUNG CANCER
     Route: 048
     Dates: start: 20061115, end: 20061128
  2. IRESSA [Suspect]
     Route: 048
     Dates: start: 20061115, end: 20061128
  3. IRESSA [Suspect]
     Route: 048
     Dates: start: 20061214, end: 20061222
  4. IRESSA [Suspect]
     Route: 048
     Dates: start: 20061214, end: 20061222
  5. ASPIRIN [Concomitant]
     Route: 048
     Dates: start: 20061114
  6. AMLODIPINE [Concomitant]
     Route: 048
     Dates: start: 20061114
  7. TENORMIN [Concomitant]
     Route: 048
     Dates: start: 20061114
  8. GASTER D [Concomitant]
     Route: 048
     Dates: start: 20061114
  9. LOXONIN [Concomitant]
     Route: 048
     Dates: start: 20061114
  10. LAC-B [Concomitant]
     Route: 048
     Dates: start: 20061114
  11. PL [Concomitant]
     Route: 048
     Dates: start: 20061117, end: 20061120

REACTIONS (4)
  - EPISTAXIS [None]
  - ERYTHEMA OF EYELID [None]
  - INTERSTITIAL LUNG DISEASE [None]
  - LIP EROSION [None]
